FAERS Safety Report 4583408-3 (Version None)
Quarter: 2005Q1

REPORT INFORMATION
  Report Type: 
  Country: None (occurrence: None)
  Receive Date: 20050211
  Receipt Date: 20050204
  Transmission Date: 20050727
  Serious: Yes (Life-Threatening)
  Sender: FDA-Public Use
  Company Number: 2005AP00956

PATIENT
  Sex: Female

DRUGS (3)
  1. MARCAINE [Suspect]
  2. HYDRALAZINE HCL [Suspect]
     Dosage: 12 MG DAILY IV
     Route: 042
  3. VALIUM [Suspect]
     Dosage: 10 MG DAILY

REACTIONS (6)
  - BLOOD PRESSURE IMMEASURABLE [None]
  - CYANOSIS [None]
  - HAEMORRHAGE [None]
  - PROTEINURIA [None]
  - RENAL IMPAIRMENT [None]
  - SYNCOPE [None]
